FAERS Safety Report 8175480-9 (Version None)
Quarter: 2012Q1

REPORT INFORMATION
  Report Type: 
  Country: None (occurrence: None)
  Receive Date: 20120229
  Receipt Date: 20120220
  Transmission Date: 20120608
  Serious: Yes (Other)
  Sender: FDA-Public Use
  Company Number: US-ASTRAZENECA-2012SE11638

PATIENT
  Age: 66 Year
  Sex: Female
  Weight: 59.9 kg

DRUGS (3)
  1. FASLODEX [Suspect]
     Indication: BREAST CANCER METASTATIC
     Route: 030
     Dates: start: 20111001
  2. ANTI-ESTROGEN DRUG [Concomitant]
  3. ZOMETA [Concomitant]

REACTIONS (2)
  - TUMOUR MARKER INCREASED [None]
  - DRUG INEFFECTIVE [None]
